FAERS Safety Report 7412201-9 (Version None)
Quarter: 2011Q2

REPORT INFORMATION
  Report Type: 
  Country: None (occurrence: None)
  Receive Date: 20110413
  Receipt Date: 20110331
  Transmission Date: 20111010
  Serious: Yes (Hospitalization, Other)
  Sender: FDA-Public Use
  Company Number: NZ-ELI_LILLY_AND_COMPANY-NZ201103009069

PATIENT
  Age: 59 Year
  Sex: Female

DRUGS (4)
  1. PARACETAMOL [Concomitant]
     Dosage: 1 G, QID
  2. CILAZAPRIL [Concomitant]
     Dosage: 0.5 MG, QD
  3. PROZAC [Suspect]
  4. SIMVASTATIN [Concomitant]
     Dosage: 40 MG, QD

REACTIONS (2)
  - CEREBRAL VASOCONSTRICTION [None]
  - CAROTID ENDARTERECTOMY [None]
